FAERS Safety Report 9018173 (Version 1)
Quarter: 2013Q1

REPORT INFORMATION
  Report Type: Spontaneous
  Country: US (occurrence: None)
  Receive Date: 20130111
  Receipt Date: 20130111
  Transmission Date: 20140127
  Serious: Yes (Other)
  Sender: FDA-Public Use
  Company Number: None

PATIENT
  Age: 63 Year
  Sex: Female
  Weight: 61.24 kg

DRUGS (10)
  1. CLOPIDOGREL [Suspect]
     Indication: CORONARY ARTERY DISEASE
     Route: 048
     Dates: start: 20121228, end: 20130103
  2. EFFIENT [Suspect]
     Indication: STENT PLACEMENT
     Route: 048
     Dates: start: 20130104, end: 20130108
  3. ASA [Concomitant]
  4. LANSOPRAZOLE [Concomitant]
  5. LORATADINE [Concomitant]
  6. METOPROLOL TARTRATE [Concomitant]
  7. PRAVASTATIN [Concomitant]
  8. UROSODIOL [Concomitant]
  9. DIOVAN [Concomitant]
  10. AMBIEN [Concomitant]

REACTIONS (11)
  - Face oedema [None]
  - Localised oedema [None]
  - Oedema peripheral [None]
  - Oedema peripheral [None]
  - Oedema peripheral [None]
  - Swelling [None]
  - Pain in extremity [None]
  - Pain in extremity [None]
  - Respiratory disorder [None]
  - Discomfort [None]
  - Local swelling [None]
